FAERS Safety Report 4873067-4 (Version None)
Quarter: 2006Q1

REPORT INFORMATION
  Report Type: 
  Country: None (occurrence: None)
  Receive Date: 20060105
  Receipt Date: 20051228
  Transmission Date: 20060701
  Serious: Yes (Hospitalization)
  Sender: FDA-Public Use
  Company Number: US-BRISTOL-MYERS SQUIBB COMPANY-13231147

PATIENT
  Sex: Female

DRUGS (5)
  1. PARAPLATIN [Suspect]
     Route: 042
     Dates: start: 20051221, end: 20051221
  2. TAXOL [Suspect]
     Dates: start: 20051221, end: 20051221
  3. ZANTAC [Concomitant]
     Indication: PREMEDICATION
  4. BENADRYL [Concomitant]
     Indication: PREMEDICATION
  5. ALOXI [Concomitant]
     Indication: PREMEDICATION

REACTIONS (1)
  - HAEMOLYTIC ANAEMIA [None]
